FAERS Safety Report 9327184 (Version 1)
Quarter: 2013Q2

REPORT INFORMATION
  Report Type: Spontaneous
  Country: US (occurrence: US)
  Receive Date: 20130604
  Receipt Date: 20130604
  Transmission Date: 20140414
  Serious: No
  Sender: FDA-Public Use
  Company Number: US-AMGEN-USASP2013034036

PATIENT
  Age: 8 Year
  Sex: Female

DRUGS (2)
  1. ENBREL [Suspect]
     Indication: JUVENILE IDIOPATHIC ARTHRITIS
     Dosage: 25 MG, QWK
     Dates: start: 201011
  2. ENBREL [Suspect]

REACTIONS (2)
  - Juvenile idiopathic arthritis [Recovered/Resolved]
  - Injection site pain [Recovered/Resolved]
